FAERS Safety Report 9692686 (Version 2)
Quarter: 2013Q4

REPORT INFORMATION
  Report Type: Spontaneous
  Country: IT (occurrence: IT)
  Receive Date: 20131118
  Receipt Date: 20131125
  Transmission Date: 20140711
  Serious: Yes (Other)
  Sender: FDA-Public Use
  Company Number: PHHY2013IT130859

PATIENT
  Age: 77 Year
  Sex: Male

DRUGS (3)
  1. ZOMETA [Suspect]
     Indication: METASTASES TO BONE
     Dosage: 04 MG, MONTHLY
     Dates: start: 20110601, end: 20120701
  2. AFINITOR [Interacting]
     Indication: RENAL CANCER
     Dosage: 10 MG, DAILY
     Route: 048
     Dates: start: 20101101, end: 20120101
  3. ANTIBIOTICS [Concomitant]
     Dosage: UNK UKN, UNK

REACTIONS (2)
  - Drug interaction [Recovering/Resolving]
  - Osteonecrosis of jaw [Recovering/Resolving]
